FAERS Safety Report 21511985 (Version 1)
Quarter: 2022Q4

REPORT INFORMATION
  Report Type: Spontaneous
  Country: GB (occurrence: GB)
  Receive Date: 20221027
  Receipt Date: 20221027
  Transmission Date: 20230112
  Serious: Yes (Hospitalization, Other)
  Sender: FDA-Public Use
  Company Number: GB-AstraZeneca-2022A339951

PATIENT
  Age: 83 Year
  Sex: Female

DRUGS (12)
  1. RAMIPRIL [Suspect]
     Active Substance: RAMIPRIL
     Indication: Acute myocardial infarction
     Dosage: UNK
     Route: 048
  2. DAPAGLIFLOZIN [Suspect]
     Active Substance: DAPAGLIFLOZIN
     Indication: Acute myocardial infarction
     Dosage: 10 MILLIGRAM, ONCE A DAY
     Route: 048
     Dates: start: 20220820
  3. ASPIRIN [Concomitant]
     Active Substance: ASPIRIN
     Indication: Myocardial infarction
     Dosage: UNK
     Route: 048
  4. ATORVASTATIN [Concomitant]
     Active Substance: ATORVASTATIN
     Indication: Myocardial infarction
     Dosage: UNK
     Route: 048
  5. BETAHISTINE [Concomitant]
     Active Substance: BETAHISTINE
     Indication: Vertigo
     Dosage: UNK
     Route: 048
  6. BISOPROLOL [Concomitant]
     Active Substance: BISOPROLOL
     Indication: Acute myocardial infarction
     Dosage: UNK
     Route: 048
  7. CALCIUM CARBONATE [Concomitant]
     Active Substance: CALCIUM CARBONATE
     Indication: Blood calcium decreased
     Dosage: UNK
     Route: 048
  8. AMOXICILLIN\CLAVULANATE POTASSIUM [Concomitant]
     Active Substance: AMOXICILLIN\CLAVULANATE POTASSIUM
     Indication: Pneumonia
     Dosage: UNK
     Route: 048
     Dates: end: 20220905
  9. EZETIMIBE [Concomitant]
     Active Substance: EZETIMIBE
     Indication: Immunoglobulins
     Dosage: UNK
     Route: 048
  10. IVABRADINE [Concomitant]
     Active Substance: IVABRADINE
     Indication: Acute myocardial infarction
     Dosage: UNK
     Route: 048
  11. LANSOPRAZOLE [Concomitant]
     Active Substance: LANSOPRAZOLE
     Indication: Antiplatelet therapy
     Dosage: UNK
     Route: 048
  12. TICAGRELOR [Concomitant]
     Active Substance: TICAGRELOR
     Indication: Acute myocardial infarction
     Dosage: UNK
     Route: 048

REACTIONS (1)
  - Syncope [Recovered/Resolved]

NARRATIVE: CASE EVENT DATE: 20220825
